FAERS Safety Report 7910255-4 (Version None)
Quarter: 2011Q4

REPORT INFORMATION
  Report Type: 
  Country: None (occurrence: None)
  Receive Date: 20111111
  Receipt Date: 20111103
  Transmission Date: 20120403
  Serious: Yes (Hospitalization)
  Sender: FDA-Public Use
  Company Number: FR-JNJFOC-20111103254

PATIENT
  Age: 50 Year
  Sex: Male

DRUGS (4)
  1. INTELENCE [Suspect]
     Indication: HIV INFECTION CDC CATEGORY B2
     Route: 048
     Dates: start: 20101208
  2. TRUVADA [Suspect]
     Indication: HIV INFECTION CDC CATEGORY B2
     Route: 048
     Dates: start: 20101208
  3. ANTI-FLU VACCINE [Suspect]
     Indication: INFLUENZA IMMUNISATION
     Route: 051
     Dates: start: 20101201, end: 20101201
  4. CHANTIX [Suspect]
     Indication: TOBACCO WITHDRAWAL SYMPTOMS
     Route: 048
     Dates: start: 20101201, end: 20110301

REACTIONS (4)
  - PARAESTHESIA [None]
  - NARCOLEPSY [None]
  - BALANCE DISORDER [None]
  - MALAISE [None]
